FAERS Safety Report 4735431-3 (Version None)
Quarter: 2005Q3

REPORT INFORMATION
  Report Type: 
  Country: None (occurrence: None)
  Receive Date: 20050805
  Receipt Date: 20050725
  Transmission Date: 20060218
  Serious: Yes (Hospitalization)
  Sender: FDA-Public Use
  Company Number: US-JNJFOC-20050705408

PATIENT
  Sex: Female
  Weight: 102.06 kg

DRUGS (1)
  1. REMICADE [Suspect]
     Indication: CROHN'S DISEASE
     Dosage: EVERY 8 WEEKS

REACTIONS (2)
  - HOSPITALISATION [None]
  - TUBERCULIN TEST POSITIVE [None]
